FAERS Safety Report 25404163 (Version 1)
Quarter: 2025Q2

REPORT INFORMATION
  Report Type: Spontaneous
  Country: US (occurrence: US)
  Receive Date: 20250606
  Receipt Date: 20250606
  Transmission Date: 20250716
  Serious: Yes (Other)
  Sender: LUPIN
  Company Number: US-MLMSERVICE-20250519-PI514367-00312-1

PATIENT
  Age: 2 Decade
  Sex: Male
  Weight: 40.816 kg

DRUGS (1)
  1. TESTOSTERONE [Suspect]
     Active Substance: TESTOSTERONE
     Indication: Secondary hypogonadism
     Route: 065

REACTIONS (3)
  - Obstructive sleep apnoea syndrome [Recovering/Resolving]
  - Condition aggravated [Recovering/Resolving]
  - Graft overgrowth [Recovering/Resolving]

NARRATIVE: CASE EVENT DATE: 20190101
